FAERS Safety Report 5422336-8 (Version None)
Quarter: 2007Q3

REPORT INFORMATION
  Report Type: 
  Country: None (occurrence: None)
  Receive Date: 20070822
  Receipt Date: 20070813
  Transmission Date: 20080115
  Serious: Yes (Hospitalization)
  Sender: FDA-Public Use
  Company Number: US-ELI_LILLY_AND_COMPANY-US200708003712

PATIENT

DRUGS (1)
  1. SOMATROPIN [Suspect]
     Dosage: 1.8 MG, DAILY (1/D)
     Dates: start: 20040126

REACTIONS (1)
  - SCOLIOSIS [None]
